APPROVED DRUG PRODUCT: CLONIDINE HYDROCHLORIDE
Active Ingredient: CLONIDINE HYDROCHLORIDE
Strength: 0.3MG
Dosage Form/Route: TABLET;ORAL
Application: A090329 | Product #003
Applicant: SUN PHARMACEUTICAL INDUSTRIES INC
Approved: Jul 3, 2014 | RLD: No | RS: No | Type: DISCN